FAERS Safety Report 6830776-5 (Version None)
Quarter: 2010Q3

REPORT INFORMATION
  Report Type: 
  Country: None (occurrence: None)
  Receive Date: 20100712
  Receipt Date: 20100628
  Transmission Date: 20110219
  Serious: Yes (Hospitalization, Other)
  Sender: FDA-Public Use
  Company Number: PHHY2010US32464

PATIENT
  Sex: Female

DRUGS (5)
  1. EXJADE [Suspect]
     Indication: IRON DEFICIENCY
     Dosage: 500 MG, DAILY
     Route: 048
  2. ESCITALOPRAM [Concomitant]
  3. METOPROLOL [Concomitant]
  4. PYRIDOXINE HCL [Concomitant]
  5. VITAMIN B-12 [Concomitant]

REACTIONS (3)
  - FALL [None]
  - HIP FRACTURE [None]
  - HUMERUS FRACTURE [None]
